FAERS Safety Report 22659227 (Version 1)
Quarter: 2023Q2

REPORT INFORMATION
  Report Type: Spontaneous
  Country: JP (occurrence: JP)
  Receive Date: 20230630
  Receipt Date: 20230630
  Transmission Date: 20230721
  Serious: Yes (Other)
  Sender: FDA-Public Use
  Company Number: None

PATIENT

DRUGS (18)
  1. NUCALA [Suspect]
     Active Substance: MEPOLIZUMAB
     Indication: Eosinophilic granulomatosis with polyangiitis
     Dosage: 300 MG, Q4W
     Dates: start: 20190718
  2. PREDNISOLONE [Concomitant]
     Active Substance: PREDNISOLONE
     Indication: Eosinophilic granulomatosis with polyangiitis
     Dosage: 30 MG
     Route: 048
     Dates: start: 2001
  3. PREDNISOLONE [Concomitant]
     Active Substance: PREDNISOLONE
     Dosage: UNK
     Route: 048
  4. PREDNISOLONE [Concomitant]
     Active Substance: PREDNISOLONE
     Dosage: 9 MG
     Route: 048
     Dates: start: 2002
  5. PREDNISOLONE [Concomitant]
     Active Substance: PREDNISOLONE
     Dosage: 19 MG
     Route: 048
     Dates: start: 201003
  6. PREDNISOLONE [Concomitant]
     Active Substance: PREDNISOLONE
     Dosage: 40 MG
     Route: 048
     Dates: start: 201708
  7. PREDNISOLONE [Concomitant]
     Active Substance: PREDNISOLONE
     Dosage: UNK
  8. PREDNISOLONE [Concomitant]
     Active Substance: PREDNISOLONE
     Dosage: 5 MG, 1D
     Route: 048
     Dates: start: 201806, end: 2020
  9. PREDNISOLONE [Concomitant]
     Active Substance: PREDNISOLONE
     Dosage: 2.5 MG
     Route: 048
     Dates: start: 202003
  10. MONTELUKAST [Concomitant]
     Active Substance: MONTELUKAST SODIUM
     Indication: Asthma
     Dosage: 10 MG, 1D
     Dates: start: 200606
  11. SPIRONOLACTONE [Concomitant]
     Active Substance: SPIRONOLACTONE
     Indication: Diuretic therapy
     Dosage: 25 MG, 1D
     Dates: start: 201802
  12. CARBOCYSTEINE [Concomitant]
     Active Substance: CARBOCYSTEINE
     Indication: Productive cough
     Dosage: 500 MG, BID
     Dates: start: 201709
  13. PREGABALIN OD TABLETS [Concomitant]
     Indication: Neuralgia
     Dosage: 75 MG, BID
     Dates: start: 201810
  14. SYMBICORT TURBUHALER INHALATION [Concomitant]
     Indication: Asthma
     Dosage: 2 DF, BID
     Route: 055
     Dates: start: 201708
  15. RECALBON TABLETS (JAPAN) [Concomitant]
     Indication: Osteoporosis
     Dosage: 50 MG, ONCE A MONTH
     Dates: start: 201206
  16. FEBUXOSTAT [Concomitant]
     Active Substance: FEBUXOSTAT
     Indication: Hyperuricaemia
     Dosage: 10 MG, 1D
     Dates: start: 201905
  17. ROSUVASTATIN OD TABLETS [Concomitant]
     Indication: Dyslipidaemia
     Dosage: 2.5 MG, 1D
     Dates: start: 201205
  18. METGLUCO TABLETS [Concomitant]
     Indication: Diabetes mellitus
     Dosage: 500 MG, BID
     Dates: start: 201912

REACTIONS (6)
  - Dementia Alzheimer^s type [Not Recovered/Not Resolved]
  - Cognitive disorder [Not Recovered/Not Resolved]
  - Cerebral atrophy [Unknown]
  - Memory impairment [Unknown]
  - Disorientation [Unknown]
  - Treatment noncompliance [Unknown]

NARRATIVE: CASE EVENT DATE: 20210101
